FAERS Safety Report 16524051 (Version 2)
Quarter: 2019Q3

REPORT INFORMATION
  Report Type: Spontaneous
  Country: MY (occurrence: MY)
  Receive Date: 20190703
  Receipt Date: 20190719
  Transmission Date: 20191004
  Serious: Yes (Other)
  Sender: FDA-Public Use
  Company Number: MY-AUROBINDO-AUR-APL-2019-036910

PATIENT

DRUGS (1)
  1. NEVIRAPINE TABLETS 200MG [Suspect]
     Active Substance: NEVIRAPINE
     Indication: ANTIRETROVIRAL THERAPY
     Dosage: 200 MILLIGRAM, TWO TIMES A DAY
     Route: 048

REACTIONS (4)
  - Eosinophilia [Recovering/Resolving]
  - Rash [Recovering/Resolving]
  - Lip dry [Recovering/Resolving]
  - Hepatic enzyme increased [Recovering/Resolving]
